FAERS Safety Report 22590603 (Version 1)
Quarter: 2023Q2

REPORT INFORMATION
  Report Type: Spontaneous
  Country: US (occurrence: None)
  Receive Date: 20230610
  Receipt Date: 20230610
  Transmission Date: 20230721
  Serious: Yes (unspecified)
  Sender: FDA-Public Use
  Company Number: None

PATIENT
  Age: 73 Year
  Sex: Female
  Weight: 78.75 kg

DRUGS (5)
  1. CALCIPOTRIENE\FLUOROURACIL [Suspect]
     Active Substance: CALCIPOTRIENE\FLUOROURACIL
     Indication: Skin discolouration
     Dosage: OTHER QUANTITY : 1 PUMP;?FREQUENCY : TWICE A DAY;?
     Route: 061
  2. CALCIPOTRIENE\FLUOROURACIL [Suspect]
     Active Substance: CALCIPOTRIENE\FLUOROURACIL
     Indication: Erythema
  3. VITAMINS [Concomitant]
     Active Substance: VITAMINS
  4. CALCIUM [Concomitant]
     Active Substance: CALCIUM
  5. MAGNESIUM [Concomitant]
     Active Substance: MAGNESIUM

REACTIONS (3)
  - Chemical burn [None]
  - Thermal burn [None]
  - Product preparation error [None]

NARRATIVE: CASE EVENT DATE: 20230606
